FAERS Safety Report 6747032-6 (Version None)
Quarter: 2010Q2

REPORT INFORMATION
  Report Type: 
  Country: None (occurrence: None)
  Receive Date: 20100528
  Receipt Date: 20100524
  Transmission Date: 20101027
  Serious: Yes (Death, Other)
  Sender: FDA-Public Use
  Company Number: PHHY2010VE33508

PATIENT
  Sex: Male

DRUGS (4)
  1. SANDOSTATIN [Suspect]
     Indication: NEUROENDOCRINE TUMOUR
     Dosage: UNK, THREE TIMES A WEEK
     Route: 058
     Dates: start: 20100201
  2. SANDOSTATIN LAR [Suspect]
     Indication: NEUROENDOCRINE TUMOUR
     Dosage: 20 MG, QMO
     Route: 030
     Dates: start: 20100322
  3. RECORMON [Concomitant]
     Indication: HAEMOGLOBIN DECREASED
  4. EPREX [Concomitant]
     Indication: HAEMOGLOBIN DECREASED
     Dosage: UNK, 40000

REACTIONS (7)
  - ASTHENIA [None]
  - CACHEXIA [None]
  - DECREASED APPETITE [None]
  - GENERAL PHYSICAL HEALTH DETERIORATION [None]
  - HAEMOGLOBIN DECREASED [None]
  - IMMUNE SYSTEM DISORDER [None]
  - METASTASES TO CENTRAL NERVOUS SYSTEM [None]
